FAERS Safety Report 11721032 (Version 2)
Quarter: 2016Q4

REPORT INFORMATION
  Report Type: Spontaneous
  Country: US (occurrence: US)
  Receive Date: 20151110
  Receipt Date: 20161108
  Transmission Date: 20170206
  Serious: No
  Sender: FDA-Public Use
  Company Number: US-SA-2015SA165633

PATIENT
  Age: 75 Year
  Sex: Female
  Weight: 69.85 kg

DRUGS (7)
  1. PRALUENT [Suspect]
     Active Substance: ALIROCUMAB
     Indication: HYPERCHOLESTEROLAEMIA
     Route: 058
     Dates: start: 20150914, end: 20151026
  2. LOSARTAN. [Concomitant]
     Active Substance: LOSARTAN
  3. ASSIVAL [Concomitant]
  4. ALIROCUMAB PREFILLED PEN [Concomitant]
     Active Substance: ALIROCUMAB
     Dates: start: 20150914, end: 20151026
  5. LIVALO [Concomitant]
     Active Substance: PITAVASTATIN CALCIUM
  6. ZETIA [Concomitant]
     Active Substance: EZETIMIBE
  7. METOPROLOL. [Concomitant]
     Active Substance: METOPROLOL

REACTIONS (1)
  - Amnesia [Recovered/Resolved]

NARRATIVE: CASE EVENT DATE: 20150928
